FAERS Safety Report 8197040 (Version 2)
Quarter: 2013Q1

REPORT INFORMATION
  Report Type: Spontaneous
  Country: BR (occurrence: BR)
  Receive Date: 20111024
  Receipt Date: 20130322
  Transmission Date: 20140127
  Serious: Yes (Disabling)
  Sender: FDA-Public Use
  Company Number: BR-ASTRAZENECA-2011SE62227

PATIENT
  Age: 61 Year
  Sex: Female
  Weight: 64 kg

DRUGS (10)
  1. ATENOLOL [Suspect]
     Indication: HYPERTENSION
     Route: 048
     Dates: end: 2010
  2. ATENOLOL [Suspect]
     Indication: HYPERTENSION
     Dosage: GENERIC ATENOLOL 50 MG BID
     Route: 048
     Dates: start: 2010, end: 2010
  3. ATENOLOL [Suspect]
     Indication: HYPERTENSION
     Route: 048
     Dates: start: 2010
  4. ENTOCORT [Suspect]
     Indication: CROHN^S DISEASE
     Route: 048
     Dates: start: 2010
  5. ENTOCORT [Suspect]
     Indication: CROHN^S DISEASE
     Route: 048
     Dates: end: 201107
  6. ENTOCORT [Suspect]
     Indication: CROHN^S DISEASE
     Dosage: DAILY
     Route: 048
     Dates: start: 201107
  7. MICARDIS [Concomitant]
     Indication: HYPERTENSION
     Dosage: DAILY
     Route: 048
  8. CAPOTEN [Concomitant]
     Indication: HYPERTENSION
     Dosage: AS REQUIRED
     Route: 048
  9. RIVOTRIL [Concomitant]
     Indication: ANXIETY
     Route: 048
  10. VALSARTAN [Concomitant]
     Indication: HYPERTENSION
     Route: 048

REACTIONS (15)
  - Pain in extremity [Not Recovered/Not Resolved]
  - Swelling [Not Recovered/Not Resolved]
  - Burning sensation [Not Recovered/Not Resolved]
  - Blood pressure increased [Not Recovered/Not Resolved]
  - Feeling hot [Not Recovered/Not Resolved]
  - Weight increased [Not Recovered/Not Resolved]
  - Hyperhidrosis [Not Recovered/Not Resolved]
  - Abdominal distension [Not Recovered/Not Resolved]
  - Increased anteroposterior chest diameter [Not Recovered/Not Resolved]
  - Pyrexia [Not Recovered/Not Resolved]
  - Swelling face [Not Recovered/Not Resolved]
  - Dyspnoea [Recovered/Resolved]
  - Erythema [Not Recovered/Not Resolved]
  - Generalised erythema [Recovered/Resolved]
  - Drug ineffective [Unknown]
